FAERS Safety Report 7748958-7 (Version None)
Quarter: 2011Q3

REPORT INFORMATION
  Report Type: 
  Country: None (occurrence: None)
  Receive Date: 20110914
  Receipt Date: 20110801
  Transmission Date: 20111222
  Serious: No
  Sender: FDA-Public Use
  Company Number: US-MYLANLABS-2011S1016169

PATIENT
  Sex: Female

DRUGS (3)
  1. IMODIUM [Concomitant]
     Indication: COLITIS ULCERATIVE
     Route: 048
  2. BUDESONIDE [Suspect]
     Indication: DIARRHOEA
     Route: 048
     Dates: start: 20110731
  3. FLAGYL [Concomitant]
     Indication: COLITIS ULCERATIVE
     Route: 048

REACTIONS (1)
  - TREMOR [None]
